FAERS Safety Report 16863447 (Version 1)
Quarter: 2019Q3

REPORT INFORMATION
  Report Type: Report from Study
  Country: LT (occurrence: LT)
  Receive Date: 20190927
  Receipt Date: 20190927
  Transmission Date: 20191005
  Serious: Yes (Hospitalization, Other)
  Sender: FDA-Public Use
  Company Number: LT-ASTRAZENECA-2019SF35981

PATIENT
  Age: 79 Year
  Sex: Female

DRUGS (6)
  1. ASPIRIN. [Concomitant]
     Active Substance: ASPIRIN
     Dosage: 100 MGX1
     Route: 048
  2. ALPRASOLAM [Concomitant]
     Dosage: 0,25 MG X1
     Route: 048
  3. ATORVASTATIN [Concomitant]
     Active Substance: ATORVASTATIN
     Dosage: 80 MGX1
  4. BRILIQUE [Suspect]
     Active Substance: TICAGRELOR
     Indication: MYOCARDIAL INFARCTION
     Dosage: 90MG X2
     Route: 048
     Dates: start: 20190904
  5. TORASEMIDE [Concomitant]
     Active Substance: TORSEMIDE
     Dosage: 5 MG X1
     Route: 048
  6. SPIRIX [Concomitant]
     Active Substance: SPIRONOLACTONE
     Dosage: 25 MG X1
     Route: 048

REACTIONS (5)
  - Balance disorder [Unknown]
  - Coordination abnormal [Unknown]
  - Cerebrovascular accident [Unknown]
  - Vertigo [Unknown]
  - Muscular weakness [Unknown]

NARRATIVE: CASE EVENT DATE: 20190904
